FAERS Safety Report 9922307 (Version 2)
Quarter: 2014Q1

REPORT INFORMATION
  Report Type: Spontaneous
  Country: JP (occurrence: JP)
  Receive Date: 20140225
  Receipt Date: 20140328
  Transmission Date: 20141002
  Serious: Yes (Other)
  Sender: FDA-Public Use
  Company Number: JP-GLAXOSMITHKLINE-B0971698A

PATIENT
  Age: 3 Month
  Sex: Male

DRUGS (1)
  1. FLOLAN [Suspect]
     Indication: PULMONARY HYPERTENSION
     Route: 042
     Dates: start: 20140216, end: 20140220

REACTIONS (2)
  - Pulmonary haemorrhage [Recovering/Resolving]
  - Interstitial lung disease [Unknown]
